FAERS Safety Report 13668382 (Version 2)
Quarter: 2017Q3

REPORT INFORMATION
  Report Type: Report from Study
  Country: PA (occurrence: PA)
  Receive Date: 20170620
  Receipt Date: 20170704
  Transmission Date: 20171127
  Serious: Yes (Other)
  Sender: FDA-Public Use
  Company Number: PHHY2017PA090045

PATIENT
  Sex: Male
  Weight: 115 kg

DRUGS (1)
  1. SANDOSTATIN LAR DEPOT [Suspect]
     Active Substance: OCTREOTIDE ACETATE
     Indication: ACROMEGALY
     Dosage: 20 MG, QMO (EVERY 30 DAYS)
     Route: 065
     Dates: start: 201510

REACTIONS (2)
  - Muscular weakness [Unknown]
  - Neoplasm progression [Unknown]
